FAERS Safety Report 5548342-0 (Version None)
Quarter: 2007Q4

REPORT INFORMATION
  Report Type: 
  Country: None (occurrence: None)
  Receive Date: 20071206
  Receipt Date: 20071121
  Transmission Date: 20080405
  Serious: Yes (Death)
  Sender: FDA-Public Use
  Company Number: 2007S1012153

PATIENT
  Sex: Female

DRUGS (1)
  1. GLICLAZIDE (GLICLAZIDE) [Suspect]
     Indication: DRUG USE FOR UNKNOWN INDICATION
     Dosage: ORAL
     Route: 048

REACTIONS (2)
  - ANAPHYLACTOID REACTION [None]
  - RESPIRATORY FAILURE [None]
